FAERS Safety Report 8604362-0 (Version None)
Quarter: 2012Q3

REPORT INFORMATION
  Report Type: 
  Country: None (occurrence: None)
  Receive Date: 20120808
  Receipt Date: 20120808
  Transmission Date: 20120928
  Serious: Yes (Other)
  Sender: FDA-Public Use
  Company Number: None

PATIENT
  Age: 64 Year
  Sex: Female

DRUGS (4)
  1. BACTRIM [Concomitant]
  2. FOSCAVIR [Suspect]
     Indication: HERPES SIMPLEX
     Dosage: -1.00 TIMES PER-3.0DAYS OPHTHALMIC
     Route: 047
  3. VALACICLOVIR [Suspect]
     Indication: HERPES SIMPLEX
     Dosage: -3.00 TIMES PER-1.ODAYS ORAL
     Route: 048
  4. PREDNISONE TAB [Concomitant]

REACTIONS (4)
  - RETINAL ISCHAEMIA [None]
  - RETINAL DETACHMENT [None]
  - VITREOUS HAEMORRHAGE [None]
  - VISUAL ACUITY REDUCED [None]
